FAERS Safety Report 6554795-1 (Version None)
Quarter: 2010Q1

REPORT INFORMATION
  Report Type: 
  Country: None (occurrence: None)
  Receive Date: 20100127
  Receipt Date: 20100122
  Transmission Date: 20100710
  Serious: Yes (Other)
  Sender: FDA-Public Use
  Company Number: FR-RB-001305-10

PATIENT
  Age: 43 Year
  Sex: Female

DRUGS (1)
  1. SUBUTEX [Suspect]
     Indication: DRUG USE FOR UNKNOWN INDICATION
     Dosage: UNKNOWN DOSING DETAILS
     Route: 065

REACTIONS (7)
  - ENDOCARDITIS [None]
  - INCORRECT ROUTE OF DRUG ADMINISTRATION [None]
  - MUSCLE HYPERTROPHY [None]
  - SEPTIC EMBOLUS [None]
  - SKIN ULCER [None]
  - STAPHYLOCOCCAL INFECTION [None]
  - SUBSTANCE ABUSE [None]
